FAERS Safety Report 7485285-X (Version None)
Quarter: 2011Q2

REPORT INFORMATION
  Report Type: 
  Country: None (occurrence: None)
  Receive Date: 20110517
  Receipt Date: 20101215
  Transmission Date: 20111010
  Serious: Yes (Death, Hospitalization, Other)
  Sender: FDA-Public Use
  Company Number: JP-BAYER-201013076BYL

PATIENT
  Age: 77 Year
  Sex: Male
  Weight: 55 kg

DRUGS (8)
  1. NEXAVAR [Suspect]
     Indication: HEPATIC NEOPLASM MALIGNANT
     Dosage: 400 MG (DAILY DOSE), QD, ORAL
     Route: 048
     Dates: start: 20100518, end: 20100601
  2. DEPAS [Concomitant]
     Indication: INSOMNIA
     Dosage: 0.5 MG, QD
     Route: 048
     Dates: start: 20100507, end: 20101117
  3. LASIX [Concomitant]
     Indication: ASCITES
     Dosage: 40 MG, QD
     Route: 048
     Dates: start: 20100507, end: 20101117
  4. AMOBAN [Concomitant]
     Indication: INSOMNIA
     Dosage: 7.5 MG, QD
     Route: 048
     Dates: start: 20100507, end: 20101117
  5. ALDACTONE [Concomitant]
     Indication: ASCITES
     Dosage: 25 MG, QD
     Route: 048
     Dates: start: 20100507, end: 20101117
  6. ALLOID G [Concomitant]
     Indication: GASTRIC ULCER
     Dosage: 60 ML, QD
     Route: 048
     Dates: start: 20100507, end: 20100608
  7. HIRUDOID [Concomitant]
     Indication: PROPHYLAXIS
     Dosage: UNK
     Route: 061
     Dates: start: 20100517, end: 20100602
  8. RABEPRAZOLE SODIUM [Concomitant]
     Indication: GASTRIC ULCER
     Dosage: 10 MG, QD
     Route: 048
     Dates: start: 20100507, end: 20101117

REACTIONS (4)
  - ASTHENIA [None]
  - PYREXIA [None]
  - LIVER CARCINOMA RUPTURED [None]
  - DECREASED APPETITE [None]
